FAERS Safety Report 14343186 (Version 1)
Quarter: 2017Q4

REPORT INFORMATION
  Report Type: Spontaneous
  Country: US (occurrence: US)
  Receive Date: 20171229
  Receipt Date: 20171229
  Transmission Date: 20180321
  Serious: Yes (Disabling)
  Sender: FDA-Public Use
  Company Number: None

PATIENT
  Age: 51 Year
  Sex: Female
  Weight: 58.5 kg

DRUGS (10)
  1. DOXYCYCLINE. [Concomitant]
     Active Substance: DOXYCYCLINE
  2. XGEVA [Suspect]
     Active Substance: DENOSUMAB
     Indication: METASTASES TO BONE
     Dates: start: 20170301, end: 20170801
  3. FENTANYL. [Concomitant]
     Active Substance: FENTANYL
  4. ATORVASTATIN [Concomitant]
     Active Substance: ATORVASTATIN
  5. PROZAC [Concomitant]
     Active Substance: FLUOXETINE HYDROCHLORIDE
  6. XGEVA [Suspect]
     Active Substance: DENOSUMAB
     Indication: RADIOTHERAPY
     Dates: start: 20170301, end: 20170801
  7. XANAX [Concomitant]
     Active Substance: ALPRAZOLAM
  8. LAMICTAL [Concomitant]
     Active Substance: LAMOTRIGINE
  9. NORCO [Concomitant]
     Active Substance: ACETAMINOPHEN\HYDROCODONE BITARTRATE
  10. TARCEVA [Concomitant]
     Active Substance: ERLOTINIB HYDROCHLORIDE

REACTIONS (3)
  - Post procedural complication [None]
  - Endodontic procedure [None]
  - Osteonecrosis of jaw [None]

NARRATIVE: CASE EVENT DATE: 20170919
